FAERS Safety Report 9734317 (Version 1)
Quarter: 2013Q4

REPORT INFORMATION
  Report Type: Spontaneous
  Country: CN (occurrence: CN)
  Receive Date: 20131206
  Receipt Date: 20131206
  Transmission Date: 20140711
  Serious: Yes (Other)
  Sender: FDA-Public Use
  Company Number: CN-ROCHE-1312333

PATIENT
  Sex: 0

DRUGS (5)
  1. HERCEPTIN [Suspect]
     Indication: HER-2 POSITIVE BREAST CANCER
     Route: 065
     Dates: start: 20120216
  2. XELODA [Suspect]
     Indication: HER-2 POSITIVE BREAST CANCER
     Dosage: DAY 1 TO DAY 14
     Route: 065
     Dates: start: 20121220
  3. TAXOL [Concomitant]
     Indication: HER-2 POSITIVE BREAST CANCER
     Route: 065
     Dates: start: 20120216
  4. PARAPLATIN [Concomitant]
     Indication: HER-2 POSITIVE BREAST CANCER
     Route: 065
     Dates: start: 20120216
  5. PEMETREXED [Concomitant]

REACTIONS (1)
  - Metastases to central nervous system [Recovering/Resolving]
